FAERS Safety Report 5109514-2 (Version None)
Quarter: 2006Q3

REPORT INFORMATION
  Report Type: 
  Country: None (occurrence: None)
  Receive Date: 20060920
  Receipt Date: 20060911
  Transmission Date: 20061208
  Serious: Yes (Death)
  Sender: FDA-Public Use
  Company Number: VE-ABBOTT-06P-178-0343740-00

PATIENT
  Age: 58 Year
  Sex: Female
  Weight: 64 kg

DRUGS (4)
  1. ZEMPLAR [Suspect]
     Indication: HYPERPARATHYROIDISM SECONDARY
     Route: 042
     Dates: start: 20050915, end: 20060905
  2. BENUTREX [Concomitant]
     Indication: VITAMIN SUPPLEMENTATION
     Route: 048
     Dates: start: 20000101, end: 20060905
  3. ERYTHROPOYETIN [Concomitant]
     Indication: ANAEMIA
     Route: 042
     Dates: start: 20000101, end: 20060905
  4. FOLIC ACID [Concomitant]
     Indication: VITAMIN SUPPLEMENTATION
     Route: 048
     Dates: start: 20000101, end: 20060905

REACTIONS (1)
  - ACUTE CORONARY SYNDROME [None]
